FAERS Safety Report 9679610 (Version 1)
Quarter: 2013Q4

REPORT INFORMATION
  Report Type: Spontaneous
  Country: US (occurrence: US)
  Receive Date: 20131109
  Receipt Date: 20131109
  Transmission Date: 20140711
  Serious: No
  Sender: FDA-Public Use
  Company Number: US-B.I. PHARMACEUTICALS,INC./RIDGEFIELD-2013-BI-34771BP

PATIENT
  Sex: Male
  Weight: 50 kg

DRUGS (1)
  1. COMBIVENT [Suspect]
     Indication: CHRONIC OBSTRUCTIVE PULMONARY DISEASE
     Dosage: DOSE PER APLLICATION: 18 MCG / 103 MCG; DAILY DOSE: 216MCG/1236MCG
     Route: 055
     Dates: start: 2005, end: 201308

REACTIONS (3)
  - Abnormal loss of weight [Not Recovered/Not Resolved]
  - Body height decreased [Not Recovered/Not Resolved]
  - Exercise tolerance decreased [Not Recovered/Not Resolved]
